FAERS Safety Report 6940176-5 (Version None)
Quarter: 2010Q3

REPORT INFORMATION
  Report Type: 
  Country: None (occurrence: None)
  Receive Date: 20100825
  Receipt Date: 20100816
  Transmission Date: 20110219
  Serious: Yes (Other)
  Sender: FDA-Public Use
  Company Number: US-PFIZER INC-2010103608

PATIENT
  Sex: Female
  Weight: 61 kg

DRUGS (2)
  1. DEPO-PROVERA [Suspect]
     Indication: OFF LABEL USE
     Dosage: 150 MG/ML, UNK
     Route: 030
     Dates: start: 20080201
  2. DEPO-PROVERA [Suspect]
     Indication: ENDOMETRIOSIS

REACTIONS (11)
  - ASTHENIA [None]
  - COLD SWEAT [None]
  - CYSTITIS [None]
  - DIZZINESS [None]
  - FATIGUE [None]
  - HEADACHE [None]
  - HYPERHIDROSIS [None]
  - HYPOAESTHESIA FACIAL [None]
  - PYREXIA [None]
  - THROAT TIGHTNESS [None]
  - THYROID FUNCTION TEST ABNORMAL [None]
